FAERS Safety Report 7547205-9 (Version None)
Quarter: 2011Q2

REPORT INFORMATION
  Report Type: 
  Country: None (occurrence: None)
  Receive Date: 20110614
  Receipt Date: 20110531
  Transmission Date: 20111010
  Serious: Yes (Hospitalization)
  Sender: FDA-Public Use
  Company Number: US-UCBSA-034344

PATIENT
  Sex: Female

DRUGS (2)
  1. VIMPAT [Suspect]
     Dosage: WEANING OFF
  2. VIMPAT [Suspect]

REACTIONS (5)
  - DYSPNOEA [None]
  - RASH [None]
  - VISION BLURRED [None]
  - CONVULSION [None]
  - BALANCE DISORDER [None]
